FAERS Safety Report 24567304 (Version 1)
Quarter: 2024Q4

REPORT INFORMATION
  Report Type: Spontaneous
  Country: PT (occurrence: PT)
  Receive Date: 20241030
  Receipt Date: 20241030
  Transmission Date: 20250115
  Serious: Yes (Other)
  Sender: GLAXOSMITHKLINE
  Company Number: None

PATIENT

DRUGS (1)
  1. ZEJULA [Suspect]
     Active Substance: NIRAPARIB
     Indication: Ovarian cancer
     Dosage: 200 MG, QD (200 MG ONCE DAILY)
     Route: 048
     Dates: start: 20240707

REACTIONS (2)
  - Thrombocytopenia [Recovered/Resolved]
  - Petechiae [Recovered/Resolved]

NARRATIVE: CASE EVENT DATE: 20240724
